FAERS Safety Report 8328102-8 (Version None)
Quarter: 2012Q2

REPORT INFORMATION
  Report Type: 
  Country: None (occurrence: None)
  Receive Date: 20120502
  Receipt Date: 20120425
  Transmission Date: 20120825
  Serious: Yes (Hospitalization)
  Sender: FDA-Public Use
  Company Number: PHHO2012DE006461

PATIENT
  Sex: Female
  Weight: 80 kg

DRUGS (4)
  1. PROGRAF [Suspect]
     Indication: RENAL TRANSPLANT
     Dosage: 3-0-2.5 MG
     Route: 048
     Dates: start: 20120322
  2. SIMULECT [Concomitant]
     Indication: RENAL TRANSPLANT
     Dosage: 20 MG, UNK
     Dates: start: 20120322, end: 20120326
  3. MYFORTIC [Suspect]
     Indication: RENAL TRANSPLANT
     Dosage: 720 MG, BID
     Dates: start: 20120322
  4. PREDNISONE [Suspect]
     Dosage: 15 MG, QD

REACTIONS (1)
  - URINARY TRACT INFECTION [None]
